FAERS Safety Report 24250896 (Version 3)
Quarter: 2024Q3

REPORT INFORMATION
  Report Type: Report from Study
  Country: IT (occurrence: IT)
  Receive Date: 20240826
  Receipt Date: 20240924
  Transmission Date: 20241016
  Serious: Yes (Hospitalization, Other)
  Sender: MYLAN
  Company Number: IT-JNJFOC-20240815256

PATIENT
  Age: 80 Year
  Sex: Female

DRUGS (3)
  1. LENALIDOMIDE [Suspect]
     Active Substance: LENALIDOMIDE
     Indication: Plasma cell myeloma
     Dosage: TOTAL DAILY DOSE - 10 (UNITS UNSPECIFIED)
     Route: 065
     Dates: start: 20240716, end: 20240806
  2. DEXAMETHASONE [Suspect]
     Active Substance: DEXAMETHASONE
     Indication: Plasma cell myeloma
     Dosage: TOTAL DAILY DOSE - 8 (UNITS UNSPECIFIED)
     Route: 065
     Dates: start: 20240717, end: 20240731
  3. DARZALEX [Suspect]
     Active Substance: DARATUMUMAB
     Indication: Plasma cell myeloma
     Dosage: TOTAL DAILY DOSE - 1800 (UNITS UNSPECIFIED)
     Route: 065
     Dates: start: 20240716, end: 20240730

REACTIONS (3)
  - Hyperpyrexia [Unknown]
  - Pyrexia [Recovered/Resolved]
  - Respiratory tract infection viral [Recovered/Resolved]

NARRATIVE: CASE EVENT DATE: 20240803
